FAERS Safety Report 25539923 (Version 1)
Quarter: 2025Q3

REPORT INFORMATION
  Report Type: Spontaneous
  Country: US (occurrence: US)
  Receive Date: 20250710
  Receipt Date: 20250710
  Transmission Date: 20251021
  Serious: No
  Sender: ETHYPHARM
  Company Number: US-ETHYPHARM-2025001871

PATIENT

DRUGS (1)
  1. BUPRENORPHINE [Suspect]
     Active Substance: BUPRENORPHINE
     Indication: Sickle cell disease

REACTIONS (1)
  - Off label use [Unknown]
